FAERS Safety Report 7734326-0 (Version None)
Quarter: 2011Q3

REPORT INFORMATION
  Report Type: 
  Country: None (occurrence: None)
  Receive Date: 20110907
  Receipt Date: 20110829
  Transmission Date: 20111222
  Serious: Yes (Other)
  Sender: FDA-Public Use
  Company Number: US-SANOFI-AVENTIS-2011SA056233

PATIENT
  Sex: Male

DRUGS (2)
  1. PLAVIX [Suspect]
     Indication: ARRHYTHMIA
     Route: 048
     Dates: start: 20110201
  2. LIPITOR [Concomitant]
     Dates: start: 20110201

REACTIONS (1)
  - ATRIAL FIBRILLATION [None]
